FAERS Safety Report 14935608 (Version 1)
Quarter: 2018Q2

REPORT INFORMATION
  Report Type: Spontaneous
  Country: US (occurrence: US)
  Receive Date: 20180524
  Receipt Date: 20180524
  Transmission Date: 20180711
  Serious: No
  Sender: FDA-Public Use
  Company Number: US-TESARO, INC.-US-2018TSO01020

PATIENT

DRUGS (1)
  1. ZEJULA [Suspect]
     Active Substance: NIRAPARIB
     Indication: PRODUCT USED FOR UNKNOWN INDICATION
     Dosage: UNK
     Route: 065

REACTIONS (6)
  - Depression [Unknown]
  - Blood pressure increased [Not Recovered/Not Resolved]
  - Haemoglobin decreased [Unknown]
  - Vomiting [Unknown]
  - Insomnia [Unknown]
  - Anxiety [Unknown]
